FAERS Safety Report 10252492 (Version 3)
Quarter: 2015Q3

REPORT INFORMATION
  Report Type: Spontaneous
  Country: US (occurrence: US)
  Receive Date: 20140623
  Receipt Date: 20150721
  Transmission Date: 20151125
  Serious: Yes (Death, Life-Threatening, Other)
  Sender: FDA-Public Use
  Company Number: US-009507513-1406USA009664

PATIENT
  Sex: Female
  Weight: 81.63 kg

DRUGS (4)
  1. JANUMET [Suspect]
     Active Substance: METFORMIN HYDROCHLORIDE\SITAGLIPTIN PHOSPHATE
     Indication: TYPE 2 DIABETES MELLITUS
     Dosage: 100 MG/1000 MG, QD
     Route: 048
     Dates: start: 20120417, end: 20120517
  2. JANUVIA [Suspect]
     Active Substance: SITAGLIPTIN PHOSPHATE
     Dosage: 100 MG, QD
     Route: 048
     Dates: start: 20120613, end: 20120713
  3. JANUVIA [Suspect]
     Active Substance: SITAGLIPTIN PHOSPHATE
     Dosage: 100 MG, QD
     Route: 048
     Dates: start: 20100617, end: 20111110
  4. JANUVIA [Suspect]
     Active Substance: SITAGLIPTIN PHOSPHATE
     Indication: TYPE 2 DIABETES MELLITUS
     Dosage: 100 MG, QD
     Route: 048
     Dates: start: 20091028, end: 20091227

REACTIONS (15)
  - Abnormal loss of weight [Unknown]
  - Cholecystitis [Unknown]
  - Nausea [Unknown]
  - Cholecystectomy [Unknown]
  - Gallbladder disorder [Unknown]
  - Biopsy liver [Unknown]
  - Abdominal pain [Unknown]
  - Diverticulum [Unknown]
  - Gastrooesophageal reflux disease [Unknown]
  - Cholelithiasis [Unknown]
  - Vomiting [Unknown]
  - Metastases to liver [Unknown]
  - Gastric ulcer [Unknown]
  - Gastric varices [Unknown]
  - Pancreatic carcinoma [Fatal]

NARRATIVE: CASE EVENT DATE: 201112
